FAERS Safety Report 5230741-8 (Version None)
Quarter: 2007Q1

REPORT INFORMATION
  Report Type: 
  Country: None (occurrence: None)
  Receive Date: 20070206
  Receipt Date: 20070131
  Transmission Date: 20070707
  Serious: Yes (Other)
  Sender: FDA-Public Use
  Company Number: GB-GLAXOSMITHKLINE-B0359667A

PATIENT
  Sex: Female

DRUGS (10)
  1. SEROXAT [Suspect]
     Route: 065
     Dates: start: 20010105
  2. DIAZEPAM [Concomitant]
     Route: 065
     Dates: start: 20010101
  3. ANALGESIC [Concomitant]
     Dosage: 12TAB CUMULATIVE DOSE
     Route: 065
  4. ZOLPIDEM TARTRATE [Concomitant]
     Dosage: 1TAB AT NIGHT
     Route: 065
  5. SALBUTAMOL [Concomitant]
     Route: 055
  6. ORAL CONTRACEPTIVE [Concomitant]
     Route: 048
  7. MIRTAZAPINE [Concomitant]
     Dosage: 30MG UNKNOWN
     Route: 065
  8. SERTRALINE [Concomitant]
     Dosage: 50MG AT NIGHT
     Route: 065
  9. THIORIDAZINE HCL [Concomitant]
     Dosage: 10MG THREE TIMES PER DAY
     Route: 065
  10. ALCOHOL [Concomitant]
     Dosage: 50UNIT WEEKLY
     Route: 048

REACTIONS (4)
  - ABORTION SPONTANEOUS [None]
  - DRUG WITHDRAWAL SYNDROME [None]
  - OVERDOSE [None]
  - SUICIDE ATTEMPT [None]
